FAERS Safety Report 17196521 (Version 1)
Quarter: 2019Q4

REPORT INFORMATION
  Report Type: Spontaneous
  Country: US (occurrence: US)
  Receive Date: 20191224
  Receipt Date: 20191224
  Transmission Date: 20200122
  Serious: No
  Sender: FDA-Public Use
  Company Number: US-VERTEX PHARMACEUTICALS-2019-012837

PATIENT
  Age: 14 Year
  Sex: Female
  Weight: 40 kg

DRUGS (1)
  1. TRIKAFTA [Suspect]
     Active Substance: ELEXACAFTOR\IVACAFTOR\TEZACAFTOR
     Indication: CYSTIC FIBROSIS
     Dosage: 100MG ELEXACAFTOR/50MG TEZACAFTOR/75MG IVACAFTOR AND 150MG IVACAFTOR(FREQUENCY UNKNOWN)
     Route: 048
     Dates: start: 20191206

REACTIONS (2)
  - Gastrooesophageal reflux disease [Recovered/Resolved]
  - Sputum increased [Unknown]

NARRATIVE: CASE EVENT DATE: 20191209
